FAERS Safety Report 5201248-9 (Version None)
Quarter: 2007Q1

REPORT INFORMATION
  Report Type: 
  Country: None (occurrence: None)
  Receive Date: 20070103
  Receipt Date: 20061204
  Transmission Date: 20070707
  Serious: Yes (Hospitalization)
  Sender: FDA-Public Use
  Company Number: FSC_0014_2006

PATIENT
  Age: 28 Year
  Sex: Female
  Weight: 70 kg

DRUGS (1)
  1. ISOPTIN [Suspect]
     Indication: ACCIDENTAL EXPOSURE
     Dosage: 240 MG ONCE PO
     Route: 048
     Dates: start: 20061114, end: 20061114

REACTIONS (2)
  - ACCIDENTAL EXPOSURE [None]
  - ATRIOVENTRICULAR BLOCK [None]
